FAERS Safety Report 4475338-2 (Version None)
Quarter: 2004Q4

REPORT INFORMATION
  Report Type: 
  Country: None (occurrence: None)
  Receive Date: 20041013
  Receipt Date: 20041013
  Transmission Date: 20050328
  Serious: Yes (Hospitalization, Other)
  Sender: FDA-Public Use
  Company Number: None

PATIENT
  Age: 77 Year
  Sex: Male
  Weight: 99.6 kg

DRUGS (9)
  1. WARFARIN SODIUM [Suspect]
     Indication: ATRIAL FLUTTER
     Dosage: 2.5 MG PO DAILY
     Route: 048
  2. ASPIRIN [Suspect]
     Indication: ATRIAL FLUTTER
     Dosage: 81 MG PO DAILY
     Route: 048
  3. ETODOLAC [Concomitant]
  4. WARFARIN [Concomitant]
  5. LORATADINE [Concomitant]
  6. ATENOLOL [Concomitant]
  7. LISINOPRIL [Concomitant]
  8. ASPIRIN [Concomitant]
  9. VIT B [Concomitant]

REACTIONS (4)
  - COAGULOPATHY [None]
  - GASTRIC ULCER [None]
  - INTERNATIONAL NORMALISED RATIO INCREASED [None]
  - UPPER GASTROINTESTINAL HAEMORRHAGE [None]
